FAERS Safety Report 8376929-9 (Version None)
Quarter: 2012Q2

REPORT INFORMATION
  Report Type: 
  Country: None (occurrence: None)
  Receive Date: 20120522
  Receipt Date: 20120510
  Transmission Date: 20120825
  Serious: Yes (Other)
  Sender: FDA-Public Use
  Company Number: US-JNJFOC-20120307675

PATIENT
  Age: 62 Year
  Sex: Male
  Weight: 95.26 kg

DRUGS (9)
  1. ISORDIL [Concomitant]
     Route: 048
  2. FENTANYL-100 [Suspect]
     Indication: BACK PAIN
     Dosage: 100, 50, 25 UG/HR
     Route: 062
     Dates: end: 20120301
  3. LASIX [Concomitant]
     Route: 048
  4. MOBIC [Concomitant]
     Route: 048
  5. ZOLOFT [Concomitant]
     Route: 048
  6. PLAVIX [Concomitant]
     Route: 048
  7. ASPIRIN [Concomitant]
     Route: 048
  8. LYRICA [Concomitant]
     Route: 048
  9. SIMVASTATIN [Concomitant]
     Route: 048

REACTIONS (2)
  - PROSTATIC DISORDER [None]
  - DERMATITIS CONTACT [None]
